FAERS Safety Report 18579381 (Version 1)
Quarter: 2020Q4

REPORT INFORMATION
  Report Type: Report from Study
  Country: None (occurrence: HU)
  Receive Date: 20201204
  Receipt Date: 20201204
  Transmission Date: 20210114
  Serious: Yes (Hospitalization)
  Sender: FDA-Public Use
  Company Number: HU-ABBVIE-20K-076-3673878-00

PATIENT
  Sex: Male

DRUGS (5)
  1. PERINDOPRIL [Concomitant]
     Active Substance: PERINDOPRIL
     Indication: HYPERTENSION
     Route: 048
     Dates: start: 2013
  2. SILYMARIN [Concomitant]
     Active Substance: DIETARY SUPPLEMENT\HERBALS\MILK THISTLE
     Indication: LIVER INJURY
     Route: 048
     Dates: start: 2013
  3. RABEPRAZOLE [Concomitant]
     Active Substance: RABEPRAZOLE
     Indication: HYPERCHLORHYDRIA
     Route: 048
     Dates: start: 2013
  4. SKYRIZI [Suspect]
     Active Substance: RISANKIZUMAB-RZAA
     Indication: PSORIASIS
     Route: 058
     Dates: start: 20200110
  5. LEVETIRACETAM. [Concomitant]
     Active Substance: LEVETIRACETAM
     Indication: CEREBROVASCULAR ACCIDENT
     Route: 048
     Dates: start: 2013

REACTIONS (6)
  - Pain in extremity [Recovered/Resolved]
  - Vomiting [Recovered/Resolved]
  - Urosepsis [Recovered/Resolved]
  - Peripheral artery occlusion [Recovered/Resolved]
  - Asthenia [Recovered/Resolved]
  - Lividity [Recovered/Resolved]

NARRATIVE: CASE EVENT DATE: 20200825
